FAERS Safety Report 5675114-9 (Version None)
Quarter: 2008Q1

REPORT INFORMATION
  Report Type: 
  Country: None (occurrence: None)
  Receive Date: 20080320
  Receipt Date: 20080313
  Transmission Date: 20080703
  Serious: Yes (Hospitalization)
  Sender: FDA-Public Use
  Company Number: US-JNJFOC-20080303875

PATIENT
  Sex: Male
  Weight: 61.69 kg

DRUGS (4)
  1. RISPERDAL [Suspect]
     Indication: ANXIETY
     Route: 048
  2. RISPERDAL [Suspect]
     Indication: DEPRESSION
     Route: 048
  3. WELLBUTRIN [Concomitant]
     Indication: DEPRESSION
  4. SEROQUEL [Concomitant]
     Indication: ANXIETY

REACTIONS (4)
  - ANXIETY [None]
  - COMMUNICATION DISORDER [None]
  - DEPRESSION [None]
  - DROOLING [None]
